FAERS Safety Report 8094472-1 (Version None)
Quarter: 2012Q1

REPORT INFORMATION
  Report Type: 
  Country: None (occurrence: None)
  Receive Date: 20120130
  Receipt Date: 20120116
  Transmission Date: 20120608
  Serious: Yes (Hospitalization)
  Sender: FDA-Public Use
  Company Number: NL-ELI_LILLY_AND_COMPANY-NL201201005145

PATIENT
  Sex: Male
  Weight: 60 kg

DRUGS (24)
  1. ACETAMINOPHEN [Concomitant]
     Dosage: 1000 MG, PRN
  2. RIFADIN [Concomitant]
     Indication: TUBERCULOSIS
     Dosage: 300 MG, BID
  3. MOXIFLOXACIN [Concomitant]
     Indication: TUBERCULOSIS
  4. SLOW-K [Concomitant]
     Dosage: 1200 MG, TID
  5. ALENDRONINEZUUR A [Concomitant]
     Dosage: 70 MG, WEEKLY (1/W)
  6. ETHAMBUTOL                         /00022301/ [Concomitant]
     Indication: TUBERCULOSIS
  7. FLUCONAZOLE [Concomitant]
     Indication: OESOPHAGEAL CANDIDIASIS
  8. HALDOL [Concomitant]
     Indication: PSYCHOTIC DISORDER
     Dosage: 3 MG, PRN
  9. AMIKACIN [Concomitant]
     Indication: TUBERCULOSIS
  10. COTRIM [Concomitant]
  11. TRANXENE [Concomitant]
     Dosage: 25 MG, PRN
  12. CALCIUM CARBONATE [Concomitant]
     Dosage: 1 DF, QD
  13. ZYPREXA [Suspect]
     Indication: PSYCHOTIC DISORDER
     Dosage: 5 MG, QD
     Dates: start: 20111031
  14. DAGRAVIT [Concomitant]
     Dosage: 1 DF, QD
  15. TEMAZEPAM [Concomitant]
     Dosage: 10 MG, QD
  16. PREDNISONE TAB [Concomitant]
     Indication: LYMPHADENOPATHY
     Dosage: 50 MG, QD
  17. PREDNISOLONE [Concomitant]
     Dosage: 40 MG, QD
  18. PYRAZINAMIDE [Concomitant]
     Indication: TUBERCULOSIS
  19. RALTEGRAVIR [Concomitant]
     Indication: HIV INFECTION
     Dosage: 800 MG, QD
  20. LORAZEPAM [Concomitant]
     Indication: PSYCHOTIC DISORDER
  21. LOPERAMIDE HCL [Concomitant]
     Dosage: 20 MG, QD
  22. ISONIAZID [Concomitant]
     Indication: TUBERCULOSIS
     Dosage: 300 MG, UNK
  23. TRUVADA [Concomitant]
     Indication: HIV INFECTION
     Dosage: 1 DF, QD
  24. PENTACARINAT [Concomitant]
     Indication: PNEUMOCYSTIS JIROVECI PNEUMONIA
     Dosage: 300 MG, MONTHLY (1/M)

REACTIONS (1)
  - THROMBOSIS [None]
